FAERS Safety Report 20179935 (Version 1)
Quarter: 2021Q4

REPORT INFORMATION
  Report Type: Spontaneous
  Country: US (occurrence: None)
  Receive Date: 20211213
  Receipt Date: 20211213
  Transmission Date: 20220303
  Serious: Yes (Other)
  Sender: FDA-Public Use
  Company Number: None

PATIENT
  Age: 67 Year
  Sex: Female

DRUGS (11)
  1. OPSUMIT [Suspect]
     Active Substance: MACITENTAN
     Indication: Pulmonary hypertension
     Dosage: FREQUENCY : DAILY;?
     Route: 048
     Dates: start: 20170614
  2. PRADAXA [Concomitant]
     Active Substance: DABIGATRAN ETEXILATE MESYLATE
  3. BUPROPION [Concomitant]
     Active Substance: BUPROPION
  4. BUMEX [Concomitant]
     Active Substance: BUMETANIDE
  5. K-TAB [Concomitant]
     Active Substance: POTASSIUM CHLORIDE
  6. ASTELIN [Concomitant]
     Active Substance: AZELASTINE HYDROCHLORIDE
  7. SPIRONOLACTONE [Concomitant]
     Active Substance: SPIRONOLACTONE
  8. TIKOSYN [Concomitant]
     Active Substance: DOFETILIDE
  9. ESTRING [Concomitant]
     Active Substance: ESTRADIOL
  10. ESOMEPRAZOLE [Concomitant]
     Active Substance: ESOMEPRAZOLE
  11. VITAMINS [Concomitant]
     Active Substance: VITAMINS

REACTIONS (3)
  - Upper respiratory tract infection [None]
  - Bronchitis [None]
  - Nasopharyngitis [None]

NARRATIVE: CASE EVENT DATE: 20211203
